FAERS Safety Report 7368950-4 (Version None)
Quarter: 2011Q1

REPORT INFORMATION
  Report Type: 
  Country: None (occurrence: None)
  Receive Date: 20110323
  Receipt Date: 20110309
  Transmission Date: 20110831
  Serious: Yes (Hospitalization, Other)
  Sender: FDA-Public Use
  Company Number: DE-JNJFOC-20110302823

PATIENT
  Sex: Female
  Weight: 95 kg

DRUGS (13)
  1. FUROSEMID [Concomitant]
     Indication: RENAL FAILURE CHRONIC
  2. ASPIRIN [Concomitant]
     Indication: CORONARY ARTERY DISEASE
  3. INSULIN [Concomitant]
     Indication: TYPE 2 DIABETES MELLITUS
  4. MADOPAR [Concomitant]
     Indication: PARKINSON'S DISEASE
  5. SPIRIVA [Concomitant]
     Indication: OBSTRUCTIVE AIRWAYS DISORDER
  6. ATARAX [Concomitant]
     Indication: PRURITUS
  7. TEMAZEPAM [Concomitant]
     Indication: MUSCLE SPASMS
  8. FORADIL [Concomitant]
     Indication: ASTHMA
  9. JUNIK [Concomitant]
     Indication: ASTHMA
  10. HYDROCHLOROTHIAZIDE/RAMIPRIL [Concomitant]
     Indication: HYPERTENSION
  11. ROPINIROLE [Concomitant]
     Indication: PARKINSONISM
  12. PALEXIA RETARD [Suspect]
     Indication: PAIN
     Route: 048
  13. ASPIRIN [Concomitant]
     Indication: HYPERTENSION

REACTIONS (1)
  - MECHANICAL ILEUS [None]
